FAERS Safety Report 16444322 (Version 1)
Quarter: 2019Q3

REPORT INFORMATION
  Report Type: Spontaneous
  Country: US (occurrence: US)
  Receive Date: 20190617
  Receipt Date: 20190617
  Transmission Date: 20191004
  Serious: Yes (Death)
  Sender: FDA-Public Use
  Company Number: None

PATIENT
  Age: 50 Year
  Weight: 51.71 kg

DRUGS (1)
  1. FENTANYL. [Suspect]
     Active Substance: FENTANYL

REACTIONS (9)
  - Seizure [None]
  - Recalled product [None]
  - Drug level above therapeutic [None]
  - Incorrect dose administered by device [None]
  - Hypersomnia [None]
  - Multiple sclerosis [None]
  - Device malfunction [None]
  - Drowning [None]
  - Device failure [None]

NARRATIVE: CASE EVENT DATE: 20180904
